FAERS Safety Report 14357900 (Version 2)
Quarter: 2018Q1

REPORT INFORMATION
  Report Type: Spontaneous
  Country: US (occurrence: US)
  Receive Date: 20180105
  Receipt Date: 20180123
  Transmission Date: 20180509
  Serious: Yes (Other)
  Sender: FDA-Public Use
  Company Number: US-GLAXOSMITHKLINE-US2018001202

PATIENT
  Age: 65 Year
  Sex: Female

DRUGS (8)
  1. HYDROCODONE [Concomitant]
     Active Substance: HYDROCODONE
  2. PROAIR HFA [Concomitant]
     Active Substance: ALBUTEROL SULFATE
  3. ADVAIR DISKUS [Suspect]
     Active Substance: FLUTICASONE PROPIONATE\SALMETEROL XINAFOATE
     Indication: PULMONARY CONGESTION
     Dosage: 1 PUFF(S), BID
     Route: 055
     Dates: start: 20171222, end: 20180101
  4. ADVAIR DISKUS [Suspect]
     Active Substance: FLUTICASONE PROPIONATE\SALMETEROL XINAFOATE
     Indication: RESPIRATORY SYMPTOM
  5. BENZONATATE. [Concomitant]
     Active Substance: BENZONATATE
  6. ALPRAZOLAM. [Concomitant]
     Active Substance: ALPRAZOLAM
  7. BUPROPION SR [Concomitant]
     Active Substance: BUPROPION HYDROCHLORIDE
  8. TROSPIUM [Concomitant]
     Active Substance: TROSPIUM

REACTIONS (12)
  - Drug effect incomplete [Unknown]
  - Oral discomfort [Recovering/Resolving]
  - Throat irritation [Unknown]
  - Tongue discomfort [Unknown]
  - Glossodynia [Recovering/Resolving]
  - Oral mucosal blistering [Unknown]
  - Pain [Unknown]
  - Tongue blistering [Recovering/Resolving]
  - Adverse drug reaction [Unknown]
  - Oral pain [Recovering/Resolving]
  - Oropharyngeal blistering [Recovering/Resolving]
  - Lip blister [Recovering/Resolving]

NARRATIVE: CASE EVENT DATE: 20171224
